FAERS Safety Report 6571862-7 (Version None)
Quarter: 2010Q1

REPORT INFORMATION
  Report Type: 
  Country: None (occurrence: None)
  Receive Date: 20100205
  Receipt Date: 20100125
  Transmission Date: 20100710
  Serious: Yes (Death, Hospitalization)
  Sender: FDA-Public Use
  Company Number: US-JNJFOC-20100201752

PATIENT
  Age: 3 Year
  Sex: Male

DRUGS (2)
  1. CHILDREN'S TYLENOL [Suspect]
     Route: 048
  2. CHILDREN'S TYLENOL [Suspect]
     Indication: DRUG USE FOR UNKNOWN INDICATION
     Route: 048

REACTIONS (4)
  - ACUTE HEPATIC FAILURE [None]
  - ENCEPHALOPATHY [None]
  - MULTI-ORGAN FAILURE [None]
  - RESPIRATORY FAILURE [None]
